FAERS Safety Report 7597884-5 (Version None)
Quarter: 2011Q3

REPORT INFORMATION
  Report Type: 
  Country: None (occurrence: None)
  Receive Date: 20110708
  Receipt Date: 20110701
  Transmission Date: 20111222
  Serious: Yes (Hospitalization, Other)
  Sender: FDA-Public Use
  Company Number: US-BRISTOL-MYERS SQUIBB COMPANY-15871635

PATIENT
  Sex: Male

DRUGS (1)
  1. ABILIFY [Suspect]
     Dosage: 01JUL2011:1 TABS
     Dates: start: 20110601

REACTIONS (3)
  - ROAD TRAFFIC ACCIDENT [None]
  - INJURY [None]
  - CONFUSIONAL STATE [None]
